FAERS Safety Report 16001768 (Version 1)
Quarter: 2019Q1

REPORT INFORMATION
  Report Type: Spontaneous
  Country: US (occurrence: US)
  Receive Date: 20190225
  Receipt Date: 20190225
  Transmission Date: 20190418
  Serious: No
  Sender: FDA-Public Use
  Company Number: US-ALLERGAN-1901731US

PATIENT
  Age: 70 Year
  Sex: Female
  Weight: 49.44 kg

DRUGS (7)
  1. NORCO [Suspect]
     Active Substance: ACETAMINOPHEN\HYDROCODONE BITARTRATE
     Dosage: 10.5 MG, UNK
     Route: 065
     Dates: start: 2018
  2. NORCO [Suspect]
     Active Substance: ACETAMINOPHEN\HYDROCODONE BITARTRATE
     Indication: PAIN
     Dosage: 5 MG, Q6HR
     Route: 065
     Dates: start: 2018
  3. NORCO [Suspect]
     Active Substance: ACETAMINOPHEN\HYDROCODONE BITARTRATE
     Dosage: 7.5 MG, UNK
     Route: 065
     Dates: start: 2018
  4. SEROQUEL [Suspect]
     Active Substance: QUETIAPINE FUMARATE
     Dosage: 300 MG, QPM
     Route: 065
     Dates: start: 20181126
  5. SEROQUEL [Suspect]
     Active Substance: QUETIAPINE FUMARATE
     Dosage: 200 MG, QAM
     Route: 065
     Dates: start: 20181126
  6. SEROQUEL [Suspect]
     Active Substance: QUETIAPINE FUMARATE
     Indication: PRODUCT USED FOR UNKNOWN INDICATION
     Dosage: 200 MG, QPM
     Route: 065
  7. IBRANCE [Suspect]
     Active Substance: PALBOCICLIB
     Indication: BREAST CANCER
     Dosage: 125 MG, QHS
     Route: 048
     Dates: start: 20181204, end: 20181212

REACTIONS (3)
  - Weight decreased [Not Recovered/Not Resolved]
  - Wrong technique in product usage process [Unknown]
  - Decreased appetite [Not Recovered/Not Resolved]

NARRATIVE: CASE EVENT DATE: 201809
